FAERS Safety Report 9868611 (Version 2)
Quarter: 2014Q1

REPORT INFORMATION
  Report Type: Report from Study
  Country: US (occurrence: US)
  Receive Date: 20140204
  Receipt Date: 20140204
  Transmission Date: 20141002
  Serious: Yes (Other)
  Sender: FDA-Public Use
  Company Number: US-SANOFI-AVENTIS-2013SA093097

PATIENT
  Age: 62 Year
  Sex: Male

DRUGS (1)
  1. AUBAGIO [Suspect]
     Indication: MULTIPLE SCLEROSIS
     Dosage: TAKEN FROM: THREE MONTHS
     Route: 048
     Dates: start: 20130801, end: 20140122

REACTIONS (4)
  - Neoplasm malignant [Unknown]
  - Pain in extremity [Unknown]
  - Anaemia [Unknown]
  - Diarrhoea [Unknown]
